FAERS Safety Report 6834195-7 (Version None)
Quarter: 2010Q3

REPORT INFORMATION
  Report Type: 
  Country: None (occurrence: None)
  Receive Date: 20100712
  Receipt Date: 20070522
  Transmission Date: 20110219
  Serious: Yes (Other)
  Sender: FDA-Public Use
  Company Number: US-PFIZER INC-2007033853

PATIENT
  Age: 70 Year
  Sex: Female
  Weight: 72.6 kg

DRUGS (4)
  1. CHANTIX [Suspect]
     Indication: SMOKING CESSATION THERAPY
     Dosage: STARTER PACK
     Route: 048
     Dates: start: 20070319
  2. GLUCOPHAGE [Concomitant]
  3. LOTREL [Concomitant]
  4. NEXIUM [Concomitant]

REACTIONS (4)
  - DISCOMFORT [None]
  - INSOMNIA [None]
  - NAUSEA [None]
  - VOMITING [None]
